FAERS Safety Report 9397615 (Version 1)
Quarter: 2013Q3

REPORT INFORMATION
  Report Type: Spontaneous
  Country: JP (occurrence: JP)
  Receive Date: 20130712
  Receipt Date: 20130712
  Transmission Date: 20140515
  Serious: Yes (Disabling)
  Sender: FDA-Public Use
  Company Number: JP-ALLERGAN-1309994US

PATIENT
  Age: 62 Year
  Sex: Male

DRUGS (3)
  1. LUMIGAN [Suspect]
     Indication: GLAUCOMA
     Dosage: 1 DROP EACH EYE QD
     Route: 047
     Dates: start: 20130312, end: 20130509
  2. TAPROS [Concomitant]
     Indication: GLAUCOMA
     Dosage: 2 GTT, QD
     Route: 047
     Dates: start: 20120628, end: 20130312
  3. TAPROS [Concomitant]
     Dosage: 2 GTT, QD
     Route: 047
     Dates: start: 20130509

REACTIONS (1)
  - Blood pressure increased [Recovered/Resolved]
